FAERS Safety Report 7229308-1 (Version None)
Quarter: 2011Q1

REPORT INFORMATION
  Report Type: 
  Country: None (occurrence: None)
  Receive Date: 20110117
  Receipt Date: 20110106
  Transmission Date: 20110831
  Serious: Yes (Death, Hospitalization)
  Sender: FDA-Public Use
  Company Number: US-JNJFOC-20110101737

PATIENT
  Age: 56 Year
  Sex: Female

DRUGS (9)
  1. ACETAMINOPHEN [Suspect]
     Indication: PRODUCT USED FOR UNKNOWN INDICATION
     Dosage: INGESTION OF 8000MG/DAY FOR 3 DAYS
  2. DIAZEPAM [Concomitant]
  3. ACETAMINOPHEN [Suspect]
  4. CARISOPRODOL [Concomitant]
  5. PHENAZOPYRIDINE HCL TAB [Concomitant]
  6. METHADONE [Concomitant]
  7. ESOMEPRAZOLE [Concomitant]
  8. GEMFIBROZIL [Concomitant]
  9. MONTELUKAST [Concomitant]

REACTIONS (4)
  - INTENTIONAL OVERDOSE [None]
  - INTENTIONAL DRUG MISUSE [None]
  - HEPATIC FAILURE [None]
  - SEPSIS [None]
